FAERS Safety Report 10811691 (Version 1)
Quarter: 2015Q1

REPORT INFORMATION
  Report Type: Spontaneous
  Country: US (occurrence: None)
  Receive Date: 20150213
  Receipt Date: 20150213
  Transmission Date: 20150721
  Serious: Yes (Hospitalization)
  Sender: FDA-Public Use
  Company Number: None

PATIENT
  Age: 64 Year
  Sex: Male

DRUGS (1)
  1. STIVARGA [Suspect]
     Active Substance: REGORAFENIB
     Indication: COLON CANCER
     Dosage: 160MG DAILY FOR 21 DAYS THAN OFF7 PO
     Route: 048
     Dates: start: 20150130, end: 20150201

REACTIONS (2)
  - Intestinal obstruction [None]
  - Haematochezia [None]

NARRATIVE: CASE EVENT DATE: 20150201
